FAERS Safety Report 7960016-5 (Version None)
Quarter: 2011Q4

REPORT INFORMATION
  Report Type: 
  Country: None (occurrence: None)
  Receive Date: 20111206
  Receipt Date: 20111121
  Transmission Date: 20120403
  Serious: Yes (Other)
  Sender: FDA-Public Use
  Company Number: GR-WATSON-2011-20956

PATIENT
  Age: 49 Year
  Sex: Male

DRUGS (8)
  1. CYCLOPHOSPHAMIDE [Suspect]
     Indication: MULTIPLE MYELOMA
  2. DEXAMETHASONE [Suspect]
     Indication: MYELODYSPLASTIC SYNDROME
  3. PREDNISONE TAB [Suspect]
     Indication: MULTIPLE MYELOMA
  4. ETOPOSIDE [Suspect]
     Indication: MULTIPLE MYELOMA
  5. INTERFERON ALFA [Suspect]
     Indication: MULTIPLE MYELOMA
  6. MELPHALAN HYDROCHLORIDE [Suspect]
     Indication: MULTIPLE MYELOMA
  7. IFOSFAMIDE [Suspect]
     Indication: MULTIPLE MYELOMA
  8. CISPLATIN [Suspect]
     Indication: MYELODYSPLASTIC SYNDROME

REACTIONS (1)
  - MYELODYSPLASTIC SYNDROME [None]
